FAERS Safety Report 17210820 (Version 1)
Quarter: 2019Q4

REPORT INFORMATION
  Report Type: Report from Study
  Country: US (occurrence: US)
  Receive Date: 20191227
  Receipt Date: 20191227
  Transmission Date: 20200122
  Serious: Yes (Hospitalization, Other)
  Sender: FDA-Public Use
  Company Number: US-GILEAD-2019-0444696

PATIENT
  Age: 41 Year
  Sex: Female

DRUGS (16)
  1. OSELTAMIVIR [Concomitant]
     Active Substance: OSELTAMIVIR
  2. LEVOTHYROXINE. [Concomitant]
     Active Substance: LEVOTHYROXINE
  3. PERTZYE [Concomitant]
     Active Substance: PANCRELIPASE AMYLASE\PANCRELIPASE LIPASE\PANCRELIPASE PROTEASE
  4. AZTREONAM LYSINE [Suspect]
     Active Substance: AZTREONAM LYSINE
     Indication: CYSTIC FIBROSIS LUNG
     Dosage: MIX 1 VIAL WITH 1 SALINE AMPULE INHALE TID 28 DAYS ON 28 DAYS OFF
     Route: 055
     Dates: start: 20130619
  5. ESOMEPRAZOLE MAGNESIUM. [Concomitant]
     Active Substance: ESOMEPRAZOLE MAGNESIUM
  6. ONDANSETRON [Concomitant]
     Active Substance: ONDANSETRON
  7. OXYCODONE [Concomitant]
     Active Substance: OXYCODONE
  8. ACYCLOVIR [ACICLOVIR] [Concomitant]
     Active Substance: ACYCLOVIR
  9. NOVOLOG [Concomitant]
     Active Substance: INSULIN ASPART
  10. SMZ-TMP [Concomitant]
     Active Substance: SULFAMETHOXAZOLE\TRIMETHOPRIM
  11. TRINTELLIX [Concomitant]
     Active Substance: VORTIOXETINE HYDROBROMIDE
  12. CONTOUR [ESOMEPRAZOLE MAGNESIUM] [Concomitant]
  13. ELIQUIS [Concomitant]
     Active Substance: APIXABAN
  14. LINZESS [Concomitant]
     Active Substance: LINACLOTIDE
  15. PREDNISONE. [Concomitant]
     Active Substance: PREDNISONE
  16. ROPINIROLE. [Concomitant]
     Active Substance: ROPINIROLE

REACTIONS (1)
  - Cystic fibrosis [Unknown]
